FAERS Safety Report 15895181 (Version 5)
Quarter: 2020Q1

REPORT INFORMATION
  Report Type: Spontaneous
  Country: US (occurrence: US)
  Receive Date: 20190131
  Receipt Date: 20200128
  Transmission Date: 20200409
  Serious: Yes (Death, Hospitalization, Other)
  Sender: FDA-Public Use
  Company Number: US-ASTRAZENECA-2018SF14557

PATIENT
  Age: 79 Year
  Sex: Male
  Weight: 80.3 kg

DRUGS (35)
  1. NEXIUM [Suspect]
     Active Substance: ESOMEPRAZOLE MAGNESIUM
     Indication: GASTROOESOPHAGEAL REFLUX DISEASE
     Dosage: GENERIC UNKNOWN
     Route: 065
     Dates: start: 2014
  2. COLCHICINE. [Concomitant]
     Active Substance: COLCHICINE
     Route: 065
  3. THIAMINE. [Concomitant]
     Active Substance: THIAMINE
     Indication: VITAMIN A
     Route: 065
     Dates: start: 2014, end: 2015
  4. CYANOCOBALAMIN. [Concomitant]
     Active Substance: CYANOCOBALAMIN
  5. HUMALOG [Concomitant]
     Active Substance: INSULIN LISPRO
  6. PROTONIX [Suspect]
     Active Substance: PANTOPRAZOLE SODIUM
     Indication: GASTROOESOPHAGEAL REFLUX DISEASE
     Route: 048
     Dates: start: 2010
  7. CIPROFLOXACIN. [Concomitant]
     Active Substance: CIPROFLOXACIN
  8. TRAVATAN [Concomitant]
     Active Substance: TRAVOPROST
     Route: 065
  9. ATORVASTATIN [Concomitant]
     Active Substance: ATORVASTATIN
     Indication: BLOOD CHOLESTEROL
     Route: 065
     Dates: start: 2012
  10. AZITHROMYCIN ANHYDROUS. [Concomitant]
     Active Substance: AZITHROMYCIN ANHYDROUS
  11. FLUCONAZOLE. [Concomitant]
     Active Substance: FLUCONAZOLE
  12. ATENOLOL. [Concomitant]
     Active Substance: ATENOLOL
     Route: 065
  13. METOPROLOL. [Concomitant]
     Active Substance: METOPROLOL
     Route: 065
  14. FUROSEMIDE. [Concomitant]
     Active Substance: FUROSEMIDE
     Route: 065
  15. TORSEMIDE. [Concomitant]
     Active Substance: TORSEMIDE
     Indication: DRUG ABUSE
     Route: 065
     Dates: start: 2010
  16. ACETAMINOPHEN. [Concomitant]
     Active Substance: ACETAMINOPHEN
     Indication: PAIN
     Route: 065
     Dates: start: 2011
  17. TRAMADOL. [Concomitant]
     Active Substance: TRAMADOL
     Indication: PAIN
     Route: 065
     Dates: start: 2011
  18. CEPHALEXIN. [Concomitant]
     Active Substance: CEPHALEXIN
     Indication: ANTIBIOTIC ASSOCIATED COLITIS
     Route: 065
     Dates: start: 2011
  19. LEVOFLOXACIN. [Concomitant]
     Active Substance: LEVOFLOXACIN
     Indication: ANTIBIOTIC ASSOCIATED COLITIS
     Route: 065
     Dates: start: 2012
  20. BACLOFEN. [Concomitant]
     Active Substance: BACLOFEN
  21. AMLODIPINE [Concomitant]
     Active Substance: AMLODIPINE BESYLATE
     Route: 065
  22. NEXIUM [Suspect]
     Active Substance: ESOMEPRAZOLE MAGNESIUM
     Indication: GASTROOESOPHAGEAL REFLUX DISEASE
     Route: 048
     Dates: start: 2005, end: 20160506
  23. SIMVASTATIN. [Concomitant]
     Active Substance: SIMVASTATIN
     Indication: BLOOD CHOLESTEROL
     Route: 065
     Dates: start: 2009
  24. ALLOPURINOL. [Concomitant]
     Active Substance: ALLOPURINOL
     Indication: GOUT
     Route: 065
     Dates: start: 2010
  25. CHOLESTYRAMINE. [Concomitant]
     Active Substance: CHOLESTYRAMINE
  26. NEXIUM [Suspect]
     Active Substance: ESOMEPRAZOLE MAGNESIUM
     Indication: GASTROOESOPHAGEAL REFLUX DISEASE
     Dosage: UNKNOWN
     Route: 048
     Dates: start: 2009, end: 2016
  27. ALLOPURINOL. [Concomitant]
     Active Substance: ALLOPURINOL
     Indication: GOUT
     Route: 065
     Dates: start: 2011
  28. PRAVASTATIN. [Concomitant]
     Active Substance: PRAVASTATIN
     Indication: BLOOD CHOLESTEROL
     Route: 065
     Dates: start: 2012
  29. DETROL LA [Concomitant]
     Active Substance: TOLTERODINE TARTRATE
  30. ENABLEX [Concomitant]
     Active Substance: DARIFENACIN HYDROBROMIDE
  31. LISINOPRIL. [Concomitant]
     Active Substance: LISINOPRIL
  32. NEXIUM [Suspect]
     Active Substance: ESOMEPRAZOLE MAGNESIUM
     Indication: GASTROOESOPHAGEAL REFLUX DISEASE
     Dosage: 40.0MG UNKNOWN
     Route: 048
     Dates: start: 20090203
  33. ASPIRIN. [Concomitant]
     Active Substance: ASPIRIN
     Indication: HEART ALTERNATION
     Route: 065
     Dates: start: 2010, end: 2016
  34. DIAZEPAM. [Concomitant]
     Active Substance: DIAZEPAM
  35. LORAZEPAM. [Concomitant]
     Active Substance: LORAZEPAM

REACTIONS (6)
  - Nephropathy [Unknown]
  - Renal failure [Unknown]
  - End stage renal disease [Fatal]
  - Chronic kidney disease-mineral and bone disorder [Unknown]
  - Chronic kidney disease [Not Recovered/Not Resolved]
  - Acute kidney injury [Unknown]

NARRATIVE: CASE EVENT DATE: 2010
